FAERS Safety Report 9197671 (Version 1)
Quarter: 2013Q1

REPORT INFORMATION
  Report Type: Spontaneous
  Country: US (occurrence: None)
  Receive Date: 20120709
  Receipt Date: 20120709
  Transmission Date: 20140127
  Serious: Yes (Hospitalization, Other)
  Sender: FDA-Public Use
  Company Number: PHEH2011US06227

PATIENT
  Age: 61 Year
  Sex: Female
  Weight: 57.6 kg

DRUGS (3)
  1. GLEEVEC (IMATINIB) [Suspect]
     Route: 048
  2. VITAMIN D3 (COLECALCIFEROL) [Concomitant]
  3. PROBIOTICS (NO INGREDIENTS/SUBSTANCES) [Concomitant]

REACTIONS (5)
  - Pyrexia [None]
  - Diarrhoea [None]
  - White blood cell count decreased [None]
  - Myalgia [None]
  - Bone pain [None]
